FAERS Safety Report 7903583-X (Version None)
Quarter: 2011Q4

REPORT INFORMATION
  Report Type: 
  Country: None (occurrence: None)
  Receive Date: 20111109
  Receipt Date: 20111109
  Transmission Date: 20120403
  Serious: Yes (Other)
  Sender: FDA-Public Use
  Company Number: None

PATIENT
  Age: 54 Year
  Sex: Female
  Weight: 93.893 kg

DRUGS (2)
  1. NUCYNTA ER [Suspect]
     Indication: BACK PAIN
     Dosage: 1 TABLET -250 MG-
     Route: 048
     Dates: start: 20111103, end: 20111104
  2. NUCYNTA ER [Suspect]
     Indication: INTERVERTEBRAL DISC DEGENERATION
     Dosage: 1 TABLET -250 MG-
     Route: 048
     Dates: start: 20111103, end: 20111104

REACTIONS (3)
  - HALLUCINATION [None]
  - AMNESIA [None]
  - MENTAL IMPAIRMENT [None]
